FAERS Safety Report 5025152-4 (Version None)
Quarter: 2006Q2

REPORT INFORMATION
  Report Type: 
  Country: None (occurrence: None)
  Receive Date: 20060426
  Receipt Date: 20060308
  Transmission Date: 20061013
  Serious: Yes (Other)
  Sender: FDA-Public Use
  Company Number: 2006014294

PATIENT
  Age: 79 Year
  Sex: Male
  Weight: 32.659 kg

DRUGS (1)
  1. LYRICA [Suspect]
     Indication: PRURITUS
     Dosage: 75 MG (75 MG, 1 IN 1 D)
     Dates: start: 20060101

REACTIONS (8)
  - ARTHRALGIA [None]
  - GAIT DISTURBANCE [None]
  - JOINT SWELLING [None]
  - OEDEMA PERIPHERAL [None]
  - PAIN IN EXTREMITY [None]
  - PRURITUS [None]
  - ULCER [None]
  - VISION BLURRED [None]
